FAERS Safety Report 23159593 (Version 1)
Quarter: 2023Q4

REPORT INFORMATION
  Report Type: Spontaneous
  Country: PL (occurrence: PL)
  Receive Date: 20231108
  Receipt Date: 20231108
  Transmission Date: 20240110
  Serious: Yes (Other)
  Sender: FDA-Public Use
  Company Number: PL-SEBELA IRELAND LIMITED-2023SEB00079

PATIENT
  Age: 31 Year
  Sex: Female

DRUGS (3)
  1. PAROXETINE [Suspect]
     Active Substance: PAROXETINE
  2. HERBALS [Suspect]
     Active Substance: HERBALS
  3. LORAZEPAM [Concomitant]
     Active Substance: LORAZEPAM

REACTIONS (2)
  - Drug interaction [Recovered/Resolved]
  - Ocular hypertension [Recovered/Resolved]
